FAERS Safety Report 7157680-X (Version None)
Quarter: 2010Q4

REPORT INFORMATION
  Report Type: 
  Country: None (occurrence: None)
  Receive Date: 20101214
  Receipt Date: 20100315
  Transmission Date: 20110411
  Serious: No
  Sender: FDA-Public Use
  Company Number: US-ASTRAZENECA-2010SE11189

PATIENT
  Age: 29830 Day
  Sex: Female

DRUGS (3)
  1. CRESTOR [Suspect]
     Indication: BLOOD CHOLESTEROL INCREASED
     Route: 048
     Dates: start: 20100309
  2. ATENOLOL [Concomitant]
  3. HYDRALAZINE [Concomitant]

REACTIONS (1)
  - DEAFNESS [None]
